FAERS Safety Report 6341591-3 (Version None)
Quarter: 2009Q3

REPORT INFORMATION
  Report Type: 
  Country: None (occurrence: None)
  Receive Date: 20090902
  Receipt Date: 20090902
  Transmission Date: 20100115
  Serious: Yes (Death)
  Sender: FDA-Public Use
  Company Number: None

PATIENT
  Sex: Male

DRUGS (8)
  1. REVLIMID [Suspect]
     Indication: MYELOFIBROSIS
     Dosage: REVLIMID 10MG DAILY ORAL
     Route: 048
     Dates: start: 20090721, end: 20090814
  2. FUROSEMIDE [Concomitant]
  3. KLOR-CON [Concomitant]
  4. DILTIAZEM [Concomitant]
  5. NOVOLIN R [Concomitant]
  6. FLOMAX [Concomitant]
  7. TRAZODONE HCL [Concomitant]
  8. TYLENOL W/ CODEINE NO. 3 [Concomitant]

REACTIONS (4)
  - ABDOMINAL PAIN [None]
  - DISEASE PROGRESSION [None]
  - FATIGUE [None]
  - GENERAL PHYSICAL HEALTH DETERIORATION [None]
